FAERS Safety Report 6805529-4 (Version None)
Quarter: 2010Q2

REPORT INFORMATION
  Report Type: 
  Country: None (occurrence: None)
  Receive Date: 20100628
  Receipt Date: 20071227
  Transmission Date: 20101027
  Serious: No
  Sender: FDA-Public Use
  Company Number: US-PFIZER INC-2007107046

PATIENT
  Sex: Female
  Weight: 63.6 kg

DRUGS (3)
  1. GEODON [Suspect]
     Indication: ANXIETY DISORDER
     Dates: start: 20070101
  2. ZOLOFT [Suspect]
     Indication: ANXIETY
     Dates: start: 20070101
  3. KLONOPIN [Concomitant]

REACTIONS (7)
  - ANXIETY [None]
  - FATIGUE [None]
  - GASTRIC DISORDER [None]
  - GASTROOESOPHAGEAL REFLUX DISEASE [None]
  - MUSCLE SPASMS [None]
  - MUSCULOSKELETAL STIFFNESS [None]
  - TACHYPHRENIA [None]
